FAERS Safety Report 24968307 (Version 1)
Quarter: 2025Q1

REPORT INFORMATION
  Report Type: Spontaneous
  Country: PK (occurrence: PK)
  Receive Date: 20250214
  Receipt Date: 20250214
  Transmission Date: 20250408
  Serious: Yes (Death)
  Sender: JOHNSON AND JOHNSON
  Company Number: PK-JNJFOC-20250223264

PATIENT
  Age: 70 Year
  Sex: Male
  Weight: 62 kg

DRUGS (6)
  1. BEDAQUILINE [Suspect]
     Active Substance: BEDAQUILINE
     Indication: Product used for unknown indication
     Route: 048
     Dates: start: 20241005
  2. MOXIFLOXACIN [Suspect]
     Active Substance: MOXIFLOXACIN
     Indication: Product used for unknown indication
     Route: 048
     Dates: start: 20241005
  3. LINEZOLID [Suspect]
     Active Substance: LINEZOLID
     Indication: Product used for unknown indication
     Route: 048
     Dates: start: 20241005
  4. PRETOMANID [Suspect]
     Active Substance: PRETOMANID
     Indication: Product used for unknown indication
     Route: 048
     Dates: start: 20241005
  5. CAPOTRIL [Concomitant]
     Indication: Hypertension
     Dates: start: 20250104
  6. AMLODIPINE [Concomitant]
     Active Substance: AMLODIPINE BESYLATE
     Indication: Hypertension
     Dates: start: 20250104

REACTIONS (1)
  - Cardiac arrest [Fatal]

NARRATIVE: CASE EVENT DATE: 20250114
